FAERS Safety Report 21624582 (Version 1)
Quarter: 2022Q4

REPORT INFORMATION
  Report Type: Other
  Country: US (occurrence: None)
  Receive Date: 20221121
  Receipt Date: 20221121
  Transmission Date: 20230113
  Serious: Yes (Other)
  Sender: FDA-Public Use
  Company Number: US-ROCHE-3221636

PATIENT
  Age: 82 Year
  Sex: Male

DRUGS (1)
  1. XELODA [Suspect]
     Active Substance: CAPECITABINE
     Indication: Hepatic cancer
     Dosage: TAKE 3 TABLET(S) BY MOUTH TWICE A DAY FOR 2 WEEK(S) THEN 2 WEEKS OFF
     Route: 048

REACTIONS (1)
  - Cardiac failure congestive [Unknown]
